FAERS Safety Report 20631328 (Version 1)
Quarter: 2022Q1

REPORT INFORMATION
  Report Type: Spontaneous
  Country: US (occurrence: None)
  Receive Date: 20220323
  Receipt Date: 20220323
  Transmission Date: 20220424
  Serious: Yes (Other)
  Sender: FDA-Public Use
  Company Number: None

PATIENT
  Age: 53 Year
  Sex: Female
  Weight: 76.5 kg

DRUGS (1)
  1. HAND SANITIZER 100ML [Suspect]
     Active Substance: ALCOHOL
     Indication: Personal hygiene
     Dosage: OTHER STRENGTH : DOSED BY PUMP;?OTHER QUANTITY : 1 PUMP;?FREQUENCY : ONCE;?
     Route: 061
     Dates: start: 20210131, end: 20210131

REACTIONS (9)
  - Malaise [None]
  - Nausea [None]
  - Diarrhoea [None]
  - Loss of consciousness [None]
  - Fall [None]
  - Respiratory arrest [None]
  - Face injury [None]
  - Face injury [None]
  - Circulatory collapse [None]

NARRATIVE: CASE EVENT DATE: 20210131
